FAERS Safety Report 5270984-0 (Version None)
Quarter: 2007Q1

REPORT INFORMATION
  Report Type: 
  Country: None (occurrence: None)
  Receive Date: 20070321
  Receipt Date: 20070312
  Transmission Date: 20070707
  Serious: Yes (Death, Hospitalization, Other)
  Sender: FDA-Public Use
  Company Number: PHEH2005US10694

PATIENT
  Age: 63 Year
  Sex: Female
  Weight: 50.793 kg

DRUGS (20)
  1. AREDIA [Suspect]
     Indication: METASTASES TO BONE
     Dosage: 90 MG, QMO
     Route: 042
     Dates: start: 20010601, end: 20050131
  2. ZOMETA [Suspect]
     Dosage: 4 MG, QMO
     Route: 042
     Dates: start: 20050131, end: 20050531
  3. ATUSS DM [Concomitant]
  4. VALIUM [Concomitant]
     Dosage: 5 MG, Q6H
  5. VALIUM [Concomitant]
     Dosage: 5MG BID
  6. MEPERGAN FORTIS [Concomitant]
     Indication: PAIN
     Dosage: UNK, PRN
  7. BENADRYL [Concomitant]
     Dosage: PRN
     Route: 042
  8. ZOFRAN [Concomitant]
     Dosage: 8 MG, PRN
  9. ALOXI [Concomitant]
     Dosage: 0.25 UNK, UNK
     Dates: start: 20041227, end: 20050117
  10. HERCEPTIN [Concomitant]
     Indication: METASTATIC NEOPLASM
     Dosage: 85 MG, UNK
     Route: 042
     Dates: start: 20030901
  11. TAXOTERE [Concomitant]
     Dosage: UNK, UNK
     Dates: end: 20050131
  12. FASLODEX [Concomitant]
     Indication: BREAST CANCER
     Dosage: 250 MG
  13. LEVAQUIN [Concomitant]
     Indication: COUGH
  14. TEGRETOL [Concomitant]
     Dosage: 200 MG, BID
     Dates: start: 20050101
  15. AROMASIN [Concomitant]
     Indication: BREAST CANCER
     Dosage: 25MG QD
     Dates: end: 20030101
  16. PHENERGAN HCL [Concomitant]
     Indication: NAUSEA
     Dosage: 25 MG, PRN
  17. DURAGESIC-100 [Concomitant]
     Indication: PAIN
     Dosage: 50 MCH/HR
     Dates: start: 20030101
  18. HEXAMETHYLMELAMINE [Concomitant]
  19. PROCRIT [Concomitant]
  20. PROTONIX [Concomitant]
     Dosage: 40MG QD

REACTIONS (87)
  - ABDOMINAL PAIN [None]
  - ACTINOMYCOSIS [None]
  - ADENOCARCINOMA [None]
  - ANOREXIA [None]
  - ANXIETY [None]
  - ARTERIOSCLEROSIS [None]
  - BIOPSY PALATE ABNORMAL [None]
  - BONE DEBRIDEMENT [None]
  - BONE DISORDER [None]
  - BREAST CANCER METASTATIC [None]
  - CARDIAC FAILURE CONGESTIVE [None]
  - CATARACT OPERATION [None]
  - CELLULITIS [None]
  - CEREBRAL ISCHAEMIA [None]
  - CHEST PAIN [None]
  - CHRONIC OBSTRUCTIVE PULMONARY DISEASE [None]
  - COMPUTERISED TOMOGRAM ABDOMEN ABNORMAL [None]
  - COUGH [None]
  - CYST [None]
  - DEATH [None]
  - DEHYDRATION [None]
  - DIZZINESS [None]
  - DYSARTHRIA [None]
  - DYSPEPSIA [None]
  - DYSPHAGIA [None]
  - DYSPNOEA [None]
  - EDENTULOUS [None]
  - FACIAL BONES FRACTURE [None]
  - FALL [None]
  - FIBROCYSTIC BREAST DISEASE [None]
  - FISTULA [None]
  - FRACTURE [None]
  - GASTROENTERITIS VIRAL [None]
  - HEADACHE [None]
  - HEMIPARESIS [None]
  - HEPATIC LESION [None]
  - HUMERUS FRACTURE [None]
  - HYPERTENSION [None]
  - HYPERTHYROIDISM [None]
  - HYPOAESTHESIA [None]
  - HYPOAESTHESIA FACIAL [None]
  - INFLAMMATION [None]
  - INJURY [None]
  - INTERVERTEBRAL DISC DISORDER [None]
  - LACUNAR INFARCTION [None]
  - LYMPH NODE CANCER METASTATIC [None]
  - LYMPHADENOPATHY [None]
  - MALIGNANT NEOPLASM PROGRESSION [None]
  - MEDIASTINAL DISORDER [None]
  - METASTASES TO BONE [None]
  - METASTASES TO LUNG [None]
  - MODIFIED RADICAL MASTECTOMY [None]
  - MOUTH ULCERATION [None]
  - NAUSEA [None]
  - NEPHROLITHIASIS [None]
  - NODULE [None]
  - NUCLEAR MAGNETIC RESONANCE IMAGING ABNORMAL [None]
  - OESOPHAGEAL PAIN [None]
  - OESOPHAGEAL ULCER [None]
  - ORAL CANDIDIASIS [None]
  - ORAL INFECTION [None]
  - OSTEITIS DEFORMANS [None]
  - OSTEOMYELITIS [None]
  - OSTEONECROSIS [None]
  - PAIN [None]
  - PAIN IN EXTREMITY [None]
  - PAIN IN JAW [None]
  - PERICARDIAL EFFUSION [None]
  - PNEUMONIA [None]
  - PULMONARY EMBOLISM [None]
  - PULMONARY HILUM MASS [None]
  - PYREXIA [None]
  - RASH [None]
  - REFUSAL OF TREATMENT BY PATIENT [None]
  - RETCHING [None]
  - RIB FRACTURE [None]
  - SPINAL DISORDER [None]
  - SPINAL OSTEOARTHRITIS [None]
  - SYNCOPE [None]
  - THYROID DISORDER [None]
  - TOOTH DISORDER [None]
  - TOOTH EXTRACTION [None]
  - TOXIC NODULAR GOITRE [None]
  - VERTIGO [None]
  - VOMITING [None]
  - WEIGHT DECREASED [None]
  - WHEEZING [None]
